FAERS Safety Report 9530251 (Version 1)
Quarter: 2013Q3

REPORT INFORMATION
  Report Type: Spontaneous
  Country: US (occurrence: US)
  Receive Date: 20130917
  Receipt Date: 20130917
  Transmission Date: 20140515
  Serious: Yes (Other)
  Sender: FDA-Public Use
  Company Number: US-UCBSA-097272

PATIENT
  Age: 49 Year
  Sex: Male

DRUGS (6)
  1. KEPPRA [Suspect]
  2. SPRYCEL/PLACEBO [Suspect]
     Indication: GLIOBLASTOMA MULTIFORME
     Dosage: 150 MG. CYCLE 1. TOTAL DOSE 6450 MG
     Dates: start: 20130415
  3. TEMODAR [Suspect]
     Indication: GLIOBLASTOMA MULTIFORME
     Dosage: 75 MG/SQ METER. CYCLE 1 6450 MG
     Dates: start: 20130415
  4. ZOFRAN [Concomitant]
  5. DECADRON [Concomitant]
  6. BACTRIM DS [Concomitant]

REACTIONS (1)
  - Lymphocyte count decreased [Recovering/Resolving]
